FAERS Safety Report 9649685 (Version 1)
Quarter: 2013Q4

REPORT INFORMATION
  Report Type: Spontaneous
  Country: GB (occurrence: GB)
  Receive Date: 20131028
  Receipt Date: 20131028
  Transmission Date: 20140711
  Serious: Yes (Disabling, Other)
  Sender: FDA-Public Use
  Company Number: PHHY2013GB118369

PATIENT
  Age: 42 Year
  Sex: Male
  Weight: 114 kg

DRUGS (2)
  1. QUETIAPINE [Suspect]
     Indication: ANXIETY
     Dosage: 300 MG, BID
     Route: 048
     Dates: start: 200608, end: 201104
  2. CITALOPRAM [Suspect]
     Indication: DEPRESSION
     Dosage: 40 MG, QD
     Route: 048
     Dates: start: 200910, end: 201111

REACTIONS (2)
  - Fall [Unknown]
  - Electrocardiogram QT prolonged [Unknown]
